FAERS Safety Report 4686767-6 (Version None)
Quarter: 2005Q2

REPORT INFORMATION
  Report Type: 
  Country: None (occurrence: None)
  Receive Date: 20050606
  Receipt Date: 20050525
  Transmission Date: 20051028
  Serious: Yes (Hospitalization)
  Sender: FDA-Public Use
  Company Number: FR_050506494

PATIENT
  Age: 78 Year
  Sex: Female

DRUGS (5)
  1. PERGOLIDE MESYLATE [Suspect]
     Dates: start: 20010215, end: 20040101
  2. MODOPAR [Concomitant]
  3. DILTIAZEM HYDROCHLORIDE [Concomitant]
  4. SPIRONOLACTONE [Concomitant]
  5. LEVOTHYROXINE SODIUM [Concomitant]

REACTIONS (4)
  - ACUTE PULMONARY OEDEMA [None]
  - AORTIC VALVE INCOMPETENCE [None]
  - CARDIAC FAILURE [None]
  - PLEURAL EFFUSION [None]
